FAERS Safety Report 13053863 (Version 1)
Quarter: 2016Q4

REPORT INFORMATION
  Report Type: Report from Study
  Country: US (occurrence: US)
  Receive Date: 20161222
  Receipt Date: 20161222
  Transmission Date: 20170207
  Serious: Yes (Hospitalization)
  Sender: FDA-Public Use
  Company Number: US-BAYER-2016-190337

PATIENT
  Age: 73 Year
  Sex: Male
  Weight: 81.63 kg

DRUGS (7)
  1. ADEMPAS [Suspect]
     Active Substance: RIOCIGUAT
     Indication: PULMONARY HYPERTENSION
     Dosage: 2 MG, TID
  2. ADEMPAS [Suspect]
     Active Substance: RIOCIGUAT
     Indication: PULMONARY HYPERTENSION
     Dosage: UNK
     Dates: start: 20160906
  3. COUMADIN [Concomitant]
     Active Substance: WARFARIN SODIUM
     Dosage: UNK
  4. DILTIAZEM. [Concomitant]
     Active Substance: DILTIAZEM
  5. WARFARIN [Concomitant]
     Active Substance: WARFARIN
  6. ADEMPAS [Suspect]
     Active Substance: RIOCIGUAT
     Indication: PULMONARY HYPERTENSION
     Dosage: 1 MG, TID
     Route: 048
  7. ADEMPAS [Suspect]
     Active Substance: RIOCIGUAT
     Indication: PULMONARY HYPERTENSION
     Dosage: 2.5 MG, TID
     Route: 048
     Dates: end: 20161103

REACTIONS (12)
  - Atrial fibrillation [Unknown]
  - Hypotension [Unknown]
  - Headache [Unknown]
  - Pneumonia [Unknown]
  - Loss of consciousness [Unknown]
  - Dyspepsia [Unknown]
  - Abdominal distension [Unknown]
  - Fatigue [Unknown]
  - Poor quality sleep [Unknown]
  - Dizziness [Unknown]
  - Asthenia [Unknown]
  - Palpitations [Unknown]
